FAERS Safety Report 21085913 (Version 2)
Quarter: 2023Q2

REPORT INFORMATION
  Report Type: Spontaneous
  Country: AU (occurrence: AU)
  Receive Date: 20220715
  Receipt Date: 20230511
  Transmission Date: 20230722
  Serious: Yes (Other)
  Sender: FDA-Public Use
  Company Number: AU-JNJFOC-20220708462

PATIENT
  Age: 65 Year
  Sex: Male

DRUGS (3)
  1. DARATUMUMAB [Suspect]
     Active Substance: DARATUMUMAB
     Indication: Plasma cell myeloma
     Route: 041
  2. VALACYCLOVIR HYDROCHLORIDE [Suspect]
     Active Substance: VALACYCLOVIR HYDROCHLORIDE
     Indication: Prophylaxis
     Route: 065
  3. TOZINAMERAN [Suspect]
     Active Substance: TOZINAMERAN
     Indication: Prophylaxis
     Route: 065
     Dates: start: 20210414

REACTIONS (3)
  - Herpes zoster oticus [Recovered/Resolved]
  - Neuralgia [Not Recovered/Not Resolved]
  - Throat lesion [Unknown]

NARRATIVE: CASE EVENT DATE: 20210503
